FAERS Safety Report 16510164 (Version 1)
Quarter: 2019Q3

REPORT INFORMATION
  Report Type: Spontaneous
  Country: US (occurrence: US)
  Receive Date: 20190701
  Receipt Date: 20190701
  Transmission Date: 20191004
  Serious: No
  Sender: FDA-Public Use
  Company Number: None

PATIENT
  Age: 56 Year
  Sex: Female
  Weight: 65.25 kg

DRUGS (3)
  1. LISINOPRIL. [Concomitant]
     Active Substance: LISINOPRIL
  2. ATENOLOL. [Concomitant]
     Active Substance: ATENOLOL
  3. GALCANEZUMAB [Suspect]
     Active Substance: GALCANEZUMAB
     Dosage: ?          OTHER FREQUENCY:MONTHLY;?
     Dates: start: 20190524

REACTIONS (3)
  - Hypersensitivity [None]
  - Drug hypersensitivity [None]
  - Discomfort [None]

NARRATIVE: CASE EVENT DATE: 20190531
